FAERS Safety Report 5979401-6 (Version None)
Quarter: 2008Q4

REPORT INFORMATION
  Report Type: 
  Country: None (occurrence: None)
  Receive Date: 20081204
  Receipt Date: 20081126
  Transmission Date: 20090506
  Serious: Yes (Other)
  Sender: FDA-Public Use
  Company Number: AU-ASTRAZENECA-2008AP09215

PATIENT
  Sex: Male

DRUGS (1)
  1. SEROQUEL XR GENERAL [Suspect]
     Indication: SCHIZOPHRENIA
     Route: 048

REACTIONS (2)
  - INTENTIONAL SELF-INJURY [None]
  - SCHIZOPHRENIA [None]
